FAERS Safety Report 8454972-9 (Version None)
Quarter: 2012Q2

REPORT INFORMATION
  Report Type: 
  Country: None (occurrence: None)
  Receive Date: 20120621
  Receipt Date: 20120615
  Transmission Date: 20120825
  Serious: No
  Sender: FDA-Public Use
  Company Number: US-PFIZER INC-2012145058

PATIENT
  Sex: Female

DRUGS (1)
  1. CLINDAMYCIN HCL [Suspect]
     Dosage: 450 MG, 3X/DAY
     Route: 048
     Dates: start: 20120601

REACTIONS (2)
  - DIARRHOEA [None]
  - MALAISE [None]
